FAERS Safety Report 9861835 (Version 1)
Quarter: 2014Q1

REPORT INFORMATION
  Report Type: Spontaneous
  Country: US (occurrence: US)
  Receive Date: 20140203
  Receipt Date: 20140203
  Transmission Date: 20141002
  Serious: No
  Sender: FDA-Public Use
  Company Number: US-PFIZER INC-2014028096

PATIENT
  Age: 45 Year
  Sex: Female
  Weight: 63.49 kg

DRUGS (1)
  1. ADVIL [Suspect]
     Indication: BACK PAIN
     Dosage: UNK, AS NEEDED
     Dates: end: 20140123

REACTIONS (3)
  - Oral discomfort [Unknown]
  - Glossodynia [Unknown]
  - Hypoaesthesia oral [Unknown]
